FAERS Safety Report 4830033-2 (Version None)
Quarter: 2005Q4

REPORT INFORMATION
  Report Type: 
  Country: None (occurrence: None)
  Receive Date: 20051115
  Receipt Date: 20051115
  Transmission Date: 20060501
  Serious: Yes (Life-Threatening)
  Sender: FDA-Public Use
  Company Number: None

PATIENT
  Sex: Male
  Weight: 62 kg

DRUGS (10)
  1. GATIFLOXACIN [Suspect]
     Indication: URINARY TRACT INFECTION
     Dosage: 1T PO DAILY X 7 DAYS
     Route: 048
     Dates: start: 20050713, end: 20050719
  2. ACETAMINOPHEN [Concomitant]
  3. CALCIUM GLUCONATE [Concomitant]
  4. DOCUSATE [Concomitant]
  5. METFORMIN [Concomitant]
  6. MILK OF MAGNESIA TAB [Concomitant]
  7. DOXAZOSIN [Concomitant]
  8. K-PHOS NEUTRAL [Concomitant]
  9. HEPARIN [Concomitant]
  10. CEFAZOLIN [Concomitant]

REACTIONS (5)
  - CONFUSIONAL STATE [None]
  - HALLUCINATION [None]
  - HYPERGLYCAEMIA [None]
  - HYPOGLYCAEMIA [None]
  - MENTAL STATUS CHANGES [None]
